FAERS Safety Report 9773733 (Version 2)
Quarter: 2013Q4

REPORT INFORMATION
  Report Type: Spontaneous
  Country: US (occurrence: US)
  Receive Date: 20131219
  Receipt Date: 20131224
  Transmission Date: 20140711
  Serious: Yes (Hospitalization, Disabling, Other)
  Sender: FDA-Public Use
  Company Number: CHPA2013US018336

PATIENT
  Age: 63 Year
  Sex: Female

DRUGS (4)
  1. VOLTAREN GEL [Suspect]
     Indication: MYALGIA
     Dosage: SMALL DAB ON FINGER, UNK
     Route: 061
     Dates: end: 20131117
  2. VOLTAREN GEL [Suspect]
     Indication: PAIN IN EXTREMITY
  3. VOLTAREN GEL [Suspect]
     Indication: OFF LABEL USE
  4. VOLTAREN GEL [Suspect]
     Indication: OFF LABEL USE

REACTIONS (18)
  - Renal failure [Recovered/Resolved]
  - Dehydration [Recovered/Resolved]
  - Contusion [Recovered/Resolved]
  - Swelling face [Recovered/Resolved]
  - Blood potassium decreased [Recovered/Resolved]
  - Amnesia [Recovered/Resolved]
  - Immobile [Recovered/Resolved]
  - Wound haemorrhage [Recovered/Resolved]
  - Skin wound [Recovered/Resolved]
  - Skin atrophy [Recovered/Resolved]
  - Impaired healing [Recovered/Resolved]
  - Hypotonia [Recovered/Resolved]
  - Feeling abnormal [Recovered/Resolved]
  - Oedema peripheral [Recovered/Resolved]
  - Pain [Recovered/Resolved]
  - Expired drug administered [Unknown]
  - Drug administered at inappropriate site [Unknown]
  - Wrong technique in drug usage process [Unknown]
